FAERS Safety Report 24686735 (Version 1)
Quarter: 2024Q4

REPORT INFORMATION
  Report Type: Spontaneous
  Country: US (occurrence: None)
  Receive Date: 20241202
  Receipt Date: 20241202
  Transmission Date: 20250115
  Serious: Yes (Hospitalization)
  Sender: Public
  Company Number: None

PATIENT
  Sex: Female

DRUGS (11)
  1. TERIFLUNOMIDE [Suspect]
     Active Substance: TERIFLUNOMIDE
     Indication: Multiple sclerosis
     Dosage: FREQ: TAKE 1 TABLET BY MOUTH DAILY
     Route: 048
     Dates: start: 20240123
  2. AMBEIN [Concomitant]
  3. BENICAR [Concomitant]
     Active Substance: OLMESARTAN MEDOXOMIL
  4. CALCIUM [Concomitant]
     Active Substance: CALCIUM
  5. CEPHALEXIN [Concomitant]
     Active Substance: CEPHALEXIN
  6. COENZYME Q10 [Concomitant]
     Active Substance: DIETARY SUPPLEMENT\UBIDECARENONE
  7. CRANBERRY [Concomitant]
     Active Substance: CRANBERRY
  8. CULTURELLE [Concomitant]
     Active Substance: LACTOBACILLUS RHAMNOSUS
  9. DALFAMPRIDINE [Concomitant]
     Active Substance: DALFAMPRIDINE
  10. ESTRADIOL [Concomitant]
     Active Substance: ESTRADIOL
  11. FISH OIL [Concomitant]
     Active Substance: FISH OIL

REACTIONS (2)
  - Gastrointestinal haemorrhage [None]
  - Haematemesis [None]
